FAERS Safety Report 4419898-6 (Version None)
Quarter: 2004Q2

REPORT INFORMATION
  Report Type: 
  Country: None (occurrence: None)
  Receive Date: 20040622
  Receipt Date: 20030822
  Transmission Date: 20050107
  Serious: Yes (Hospitalization)
  Sender: FDA-Public Use
  Company Number: 345402

PATIENT
  Age: 79 Year
  Sex: 0
  Weight: 81.6 kg

DRUGS (9)
  1. XELODA [Suspect]
     Indication: COLON CANCER
     Dosage: ORAL
     Route: 048
     Dates: start: 20030814, end: 20030818
  2. LISINOPRIL [Concomitant]
  3. SYNTHROID [Concomitant]
  4. LIPITOR [Concomitant]
  5. LOPRESSOR [Concomitant]
  6. FOLIC ACID [Concomitant]
  7. METHOTREXATE [Concomitant]
  8. ASPIRIN [Concomitant]
  9. CENTRUM (ASCORBIC ACID/CA/CHLROIDE/CHOLECALCIFEROL/CR/CU/FOLIC ACID/IO [Concomitant]

REACTIONS (2)
  - CHEST PAIN [None]
  - MYOCARDIAL INFARCTION [None]
